FAERS Safety Report 4860032-6 (Version None)
Quarter: 2005Q4

REPORT INFORMATION
  Report Type: 
  Country: None (occurrence: None)
  Receive Date: 20051219
  Receipt Date: 20051208
  Transmission Date: 20060501
  Serious: Yes (Death, Disabling)
  Sender: FDA-Public Use
  Company Number: US-ROCHE-428158

PATIENT
  Age: 88 Year
  Sex: Male
  Weight: 84.8 kg

DRUGS (15)
  1. TAMIFLU [Suspect]
     Route: 048
     Dates: start: 20050215, end: 20050220
  2. TAMIFLU [Suspect]
     Route: 048
     Dates: start: 20050221, end: 20050301
  3. ALBUTEROL [Concomitant]
     Dosage: ON AN AS NEEDED BASIS
  4. ACETAMINOPHEN [Concomitant]
     Dosage: ON AN AS NEEDED BASIS
  5. CITALOPRAM HYDROBROMIDE [Concomitant]
  6. CYANOCOBALAMIN [Concomitant]
  7. FERROUS SULFATE TAB [Concomitant]
  8. FUROSEMIDE [Concomitant]
  9. POTASSIUM CHLORIDE [Concomitant]
  10. RANITIDINE [Concomitant]
  11. MULTIVITAMIN NOS [Concomitant]
     Dosage: TAKEN DAILY
  12. MILK OF MAGNESIA TAB [Concomitant]
     Dosage: ON AN AS NEEDED BASIS
  13. NITROGLYCERIN [Concomitant]
     Dosage: ON AN AS NEEDED BASIS
  14. PROMETHAZINE [Concomitant]
     Dosage: ON AN AS NEEDED BASIS
  15. WARFARIN [Concomitant]
     Dosage: WARFARIN WAS HELD FOR NINE DOSES AND RESTARTED AT A REDUCED DOSAGE OF 1 MG THREE TIMES WEEKLY.

REACTIONS (5)
  - DEATH [None]
  - DECREASED APPETITE [None]
  - INTERNATIONAL NORMALISED RATIO INCREASED [None]
  - NAUSEA [None]
  - VOMITING [None]
